FAERS Safety Report 15813237 (Version 1)
Quarter: 2019Q1

REPORT INFORMATION
  Report Type: Spontaneous
  Country: US (occurrence: US)
  Receive Date: 20190111
  Receipt Date: 20190111
  Transmission Date: 20190417
  Serious: Yes (Disabling, Other)
  Sender: FDA-Public Use
  Company Number: US-009507513-1901USA000542

PATIENT
  Age: 69 Year
  Sex: Female

DRUGS (6)
  1. PNEUMOVAX 23 [Suspect]
     Active Substance: PNEUMOCOCCAL VACCINE, POLYVALENT 23
     Indication: PROPHYLAXIS
     Dosage: .5 MILLILITER
     Dates: start: 20181215
  2. FLUTICASONE. [Concomitant]
     Active Substance: FLUTICASONE
  3. ROSUVASTATIN. [Concomitant]
     Active Substance: ROSUVASTATIN
  4. LORATADINE. [Concomitant]
     Active Substance: LORATADINE
  5. ZETIA [Suspect]
     Active Substance: EZETIMIBE
     Dosage: 5 MG DAILY
  6. VENTOLIN [Concomitant]
     Active Substance: ALBUTEROL SULFATE

REACTIONS (12)
  - Vaccination site pain [Recovered/Resolved]
  - Pyrexia [Recovered/Resolved]
  - Mobility decreased [Recovered/Resolved]
  - Vaccination site erythema [Recovered/Resolved]
  - Drug intolerance [Recovered/Resolved]
  - Gait disturbance [Recovered/Resolved]
  - Speech disorder [Recovered/Resolved]
  - Lethargy [Recovered/Resolved]
  - Vaccination site swelling [Recovered/Resolved]
  - Pneumonia [Recovered/Resolved]
  - Chills [Recovered/Resolved]
  - Headache [Recovered/Resolved]

NARRATIVE: CASE EVENT DATE: 20181215
